FAERS Safety Report 7305512-9 (Version None)
Quarter: 2011Q1

REPORT INFORMATION
  Report Type: 
  Country: None (occurrence: None)
  Receive Date: 20110222
  Receipt Date: 20110120
  Transmission Date: 20110831
  Serious: No
  Sender: FDA-Public Use
  Company Number: US-US-EMD SERONO, INC.-7036354

PATIENT
  Sex: Female
  Weight: 102 kg

DRUGS (4)
  1. CELEBREX [Concomitant]
     Indication: ARTHRALGIA
  2. AMBIEN [Concomitant]
     Indication: INSOMNIA
  3. REBIF [Suspect]
     Indication: MULTIPLE SCLEROSIS
     Route: 058
     Dates: start: 20100401
  4. ASPIRIN [Concomitant]
     Indication: CEREBROVASCULAR ACCIDENT
     Route: 048
     Dates: start: 20091201

REACTIONS (1)
  - NO ADVERSE EVENT [None]
